FAERS Safety Report 18058733 (Version 1)
Quarter: 2020Q3

REPORT INFORMATION
  Report Type: Spontaneous
  Country: ES (occurrence: ES)
  Receive Date: 20200723
  Receipt Date: 20200723
  Transmission Date: 20201103
  Serious: Yes (Other)
  Sender: FDA-Public Use
  Company Number: ES-ACCORD-191813

PATIENT
  Age: 63 Year
  Sex: Female

DRUGS (7)
  1. PARACETAMOL [Concomitant]
     Active Substance: ACETAMINOPHEN
     Indication: TORTICOLLIS
     Dosage: STRENGTH: 1000 MG 40 TABLETS
     Route: 048
     Dates: start: 20200526, end: 20200624
  2. DIAZEPAM. [Concomitant]
     Active Substance: DIAZEPAM
     Indication: TORTICOLLIS
     Dosage: 10 MG 30 TABLETS
     Route: 048
     Dates: start: 20200526, end: 20200624
  3. ESCITALOPRAM [Suspect]
     Active Substance: ESCITALOPRAM OXALATE
     Indication: DEPRESSION
     Dosage: STRENGTH: 10 MG
     Route: 048
     Dates: start: 20200611, end: 20200709
  4. TRAZODONE [Suspect]
     Active Substance: TRAZODONE HYDROCHLORIDE
     Indication: PERSISTENT DEPRESSIVE DISORDER
     Dosage: 100 MG 60 TABLETS
     Route: 048
     Dates: start: 20200611
  5. AMLODIPINE [Concomitant]
     Active Substance: AMLODIPINE BESYLATE
     Indication: PRODUCT USED FOR UNKNOWN INDICATION
     Dosage: 5 MG 30 TABLETS
     Route: 048
     Dates: start: 20200424
  6. DELTIUS [Concomitant]
     Active Substance: CHOLECALCIFEROL
     Indication: BONE DISORDER
     Dosage: STRENGTH: 25,000 IU / 2.5 ML, 4 BOTTLES OF 2.5 ML
     Route: 048
     Dates: start: 20191023
  7. ENALAPRIL/HYDROCHLOROTHIAZIDE [Concomitant]
     Active Substance: ENALAPRIL MALEATE\HYDROCHLOROTHIAZIDE
     Indication: ESSENTIAL HYPERTENSION
     Dosage: STRENGTH: 20 MG / 12.5 MG; 28 TABLETS
     Route: 048
     Dates: start: 20200424

REACTIONS (2)
  - Abdominal pain [Recovering/Resolving]
  - Nausea [Recovering/Resolving]

NARRATIVE: CASE EVENT DATE: 20200611
